FAERS Safety Report 20986211 (Version 1)
Quarter: 2022Q2

REPORT INFORMATION
  Report Type: Spontaneous
  Country: US (occurrence: None)
  Receive Date: 20220617
  Receipt Date: 20220617
  Transmission Date: 20220720
  Serious: Yes (Other)
  Sender: FDA-Public Use
  Company Number: None

PATIENT
  Age: 61 Year
  Sex: Female
  Weight: 80.06 kg

DRUGS (6)
  1. ERIVEDGE [Suspect]
     Active Substance: VISMODEGIB
     Indication: Basal cell carcinoma
     Dosage: FREQUENCY : DAILY;?
     Route: 048
  2. CLARITIN [Concomitant]
     Active Substance: LORATADINE
  3. MUPIROCIN [Concomitant]
     Active Substance: MUPIROCIN
  4. ONDANSETRON [Concomitant]
     Active Substance: ONDANSETRON
  5. PEPCID [Concomitant]
     Active Substance: FAMOTIDINE
  6. ROSUVASTATIN [Concomitant]
     Active Substance: ROSUVASTATIN

REACTIONS (1)
  - COVID-19 [None]

NARRATIVE: CASE EVENT DATE: 20220531
